FAERS Safety Report 7958530-1 (Version None)
Quarter: 2011Q4

REPORT INFORMATION
  Report Type: 
  Country: None (occurrence: None)
  Receive Date: 20111206
  Receipt Date: 20111123
  Transmission Date: 20120403
  Serious: Yes (Other)
  Sender: FDA-Public Use
  Company Number: SE-BIOGENIDEC-2011BI031904

PATIENT
  Age: 67 Year
  Sex: Female

DRUGS (18)
  1. CALCICHEW-D3 [Concomitant]
  2. MONILEN [Concomitant]
  3. E VITAMINS [Concomitant]
  4. BEHEPAN [Concomitant]
  5. FOLIC ACID [Concomitant]
  6. VAGIFEM [Concomitant]
  7. SELEN APL [Concomitant]
  8. AVONEX [Suspect]
     Indication: RELAPSING-REMITTING MULTIPLE SCLEROSIS
     Route: 030
     Dates: start: 19970101
  9. EMGESAN [Concomitant]
  10. AVONEX [Suspect]
     Route: 030
     Dates: start: 20070101, end: 20110824
  11. BACLOFEN [Concomitant]
  12. MOVIPREP [Concomitant]
  13. IBUPROFEN [Concomitant]
  14. AMPYRA [Concomitant]
     Dates: start: 20110110, end: 20110101
  15. PREDNISONE [Concomitant]
  16. 4-AMINOPYRIDINE [Concomitant]
     Dates: start: 20111115
  17. CITODIN (NOS) [Concomitant]
  18. C VITAMINS [Concomitant]

REACTIONS (1)
  - BREAST CANCER METASTATIC [None]
